FAERS Safety Report 8160294-6 (Version None)
Quarter: 2012Q1

REPORT INFORMATION
  Report Type: 
  Country: None (occurrence: None)
  Receive Date: 20120223
  Receipt Date: 20120223
  Transmission Date: 20120608
  Serious: Yes (Hospitalization)
  Sender: FDA-Public Use
  Company Number: None

PATIENT
  Sex: Male
  Weight: 78.017 kg

DRUGS (6)
  1. CHANTIX [Concomitant]
     Dosage: 1 MG
     Route: 048
     Dates: start: 20070720, end: 20071010
  2. LISINOPRIL [Concomitant]
     Route: 048
  3. CHANTIX [Suspect]
     Indication: SMOKING CESSATION THERAPY
     Dosage: 0.5-1 MG
     Route: 048
     Dates: start: 20070712, end: 20070719
  4. VYTORIN [Concomitant]
     Route: 048
  5. HYDROCHLOROTHIAZIDE [Concomitant]
     Route: 048
  6. OMEPRAZOLE [Concomitant]
     Route: 048

REACTIONS (9)
  - STRESS [None]
  - RIB FRACTURE [None]
  - FATIGUE [None]
  - APHASIA [None]
  - MOOD ALTERED [None]
  - CEREBROVASCULAR ACCIDENT [None]
  - FALL [None]
  - DISORIENTATION [None]
  - AMNESIA [None]
